FAERS Safety Report 6191120-2 (Version None)
Quarter: 2009Q2

REPORT INFORMATION
  Report Type: 
  Country: None (occurrence: None)
  Receive Date: 20090515
  Receipt Date: 20070926
  Transmission Date: 20091009
  Serious: Yes (Hospitalization, Other)
  Sender: FDA-Public Use
  Company Number: US-ASTRAZENECA-2007UW18852

PATIENT
  Age: 14977 Day
  Sex: Male
  Weight: 144.8 kg

DRUGS (30)
  1. SEROQUEL [Suspect]
     Indication: SCHIZOPHRENIA
     Dates: start: 19980723
  2. SEROQUEL [Suspect]
     Indication: DEPRESSION
     Dates: start: 19980723
  3. SEROQUEL [Suspect]
     Indication: ANXIETY
     Dates: start: 19980723
  4. CELEXA [Concomitant]
     Indication: DEPRESSION
     Dosage: 20 TO 60 MG
     Route: 048
  5. CELEXA [Concomitant]
     Indication: ANXIETY
     Dosage: 20 TO 60 MG
     Route: 048
  6. DEPAKOTE [Concomitant]
     Indication: POST-TRAUMATIC EPILEPSY
     Dosage: 500 TO 1000 MG
     Route: 048
  7. DILANTIN [Concomitant]
     Indication: POST-TRAUMATIC EPILEPSY
     Dosage: 100 TO 400 MG
     Route: 048
  8. NEURONTIN [Concomitant]
     Indication: RADICULOPATHY
     Dosage: 200 TO 800 MG
     Route: 065
  9. TEVETEN HCT [Concomitant]
     Dosage: 600 + 12.5 MG
     Route: 065
  10. NIASPAN [Concomitant]
     Route: 065
  11. THORAZINE [Concomitant]
     Dosage: 100 TO 200 MG
     Route: 048
     Dates: end: 20060427
  12. CYMBALTA [Concomitant]
     Indication: DEPRESSION
     Dosage: 30 TO 60 MG
     Route: 065
  13. CYMBALTA [Concomitant]
     Indication: ANXIETY
     Dosage: 30 TO 60 MG
     Route: 065
  14. ADVAIR HFA [Concomitant]
     Dosage: 50 + 500 MG
     Route: 048
  15. FLEXERIL [Concomitant]
     Indication: PAIN
     Route: 065
  16. IBUPROFEN [Concomitant]
     Dosage: 600 TO 800 MG
     Route: 065
  17. ASPIRIN [Concomitant]
     Indication: CORONARY ARTERY DISEASE
     Route: 048
  18. HUMULIN R [Concomitant]
     Dosage: 25 TO 180 UNITS
     Route: 058
  19. LISINOPRIL [Concomitant]
     Dosage: 10 MG QD, QID
     Route: 065
  20. GLUCOPHAGE [Concomitant]
     Dosage: 500 MG, 2 IN MORNING, 1 IN LUNCH, 2 IN EVENING
     Route: 065
  21. RHINOCORT [Concomitant]
  22. PROZAC [Concomitant]
  23. ZOCOR [Concomitant]
     Dosage: 20 TO 40 MG
     Route: 065
  24. CHLORPROMAZINE [Concomitant]
     Route: 065
  25. LEXAPRO [Concomitant]
     Indication: DEPRESSION
     Route: 065
  26. LEXAPRO [Concomitant]
     Indication: ANXIETY
     Route: 065
  27. COZAAR [Concomitant]
     Indication: BLOOD PRESSURE
     Route: 065
  28. OXYCODONE [Concomitant]
     Indication: PAIN MANAGEMENT
     Route: 065
  29. LORTAB [Concomitant]
     Indication: PAIN
     Route: 065
  30. ABILIFY [Concomitant]
     Indication: PSYCHOTIC DISORDER
     Route: 065

REACTIONS (14)
  - ASTHENIA [None]
  - BRONCHITIS [None]
  - DENTAL CARIES [None]
  - DIABETES MELLITUS [None]
  - DIABETIC NEPHROPATHY [None]
  - DIABETIC RETINOPATHY [None]
  - FOOT FRACTURE [None]
  - HAEMATOSPERMIA [None]
  - LIMB INJURY [None]
  - MEMORY IMPAIRMENT [None]
  - MUSCULOSKELETAL PAIN [None]
  - NECK PAIN [None]
  - SUICIDE ATTEMPT [None]
  - THERMAL BURN [None]
